FAERS Safety Report 5049962-2 (Version None)
Quarter: 2006Q3

REPORT INFORMATION
  Report Type: 
  Country: None (occurrence: None)
  Receive Date: 20060707
  Receipt Date: 20060630
  Transmission Date: 20061208
  Serious: Yes (Death)
  Sender: FDA-Public Use
  Company Number: 145334USA

PATIENT
  Age: 59 Year
  Sex: Female
  Weight: 66.6788 kg

DRUGS (9)
  1. CLOZAPINE [Suspect]
     Indication: SCHIZOAFFECTIVE DISORDER
     Dosage: 175 MILLIGRAM HS ORAL
     Route: 048
     Dates: start: 20010301, end: 20060321
  2. SEROQUEL [Concomitant]
  3. EFFEXOR [Concomitant]
  4. AMBIEN [Concomitant]
  5. RITALIN [Concomitant]
  6. AMITRIPTYLINE HCL [Concomitant]
  7. PREVACID [Concomitant]
  8. NORVASC [Concomitant]
  9. LOTENSIN [Concomitant]

REACTIONS (8)
  - ABDOMINAL PAIN [None]
  - ACUTE RESPIRATORY DISTRESS SYNDROME [None]
  - BACTERIAL SEPSIS [None]
  - BLOOD PRESSURE DECREASED [None]
  - CEREBRAL INFARCTION [None]
  - FAECALOMA [None]
  - LARGE INTESTINE PERFORATION [None]
  - RENAL FAILURE [None]
